FAERS Safety Report 22394082 (Version 2)
Quarter: 2023Q2

REPORT INFORMATION
  Report Type: Spontaneous
  Country: GB (occurrence: GB)
  Receive Date: 20230601
  Receipt Date: 20230607
  Transmission Date: 20230721
  Serious: Yes (Life-Threatening, Hospitalization)
  Sender: FDA-Public Use
  Company Number: GB-TEVA-2023-GB-2892012

PATIENT
  Age: 3 Month
  Sex: Female

DRUGS (7)
  1. CAPTOPRIL [Suspect]
     Active Substance: CAPTOPRIL
     Indication: Cardiac failure
     Route: 065
  2. CALCIUM [Suspect]
     Active Substance: CALCIUM
     Indication: Cardiogenic shock
     Dosage: INFUSION
     Route: 065
  3. SILDENAFIL [Concomitant]
     Active Substance: SILDENAFIL
     Indication: Pulmonary hypertension
     Route: 065
  4. NOREPINEPHRINE [Concomitant]
     Active Substance: NOREPINEPHRINE
     Indication: Prophylaxis
     Dosage: RECEIVED AT 0.08 MICROG/KG/MIN
     Route: 065
  5. EPINEPHRINE [Concomitant]
     Active Substance: EPINEPHRINE
     Indication: Prophylaxis
     Dosage: RECEIVED AT 0.06 MICROG/KG/MIN
     Route: 065
  6. MILRINONE [Concomitant]
     Active Substance: MILRINONE
     Indication: Prophylaxis
     Dosage: RECEIVED AT 0.5 MICROG/KG/MIN
     Route: 065
  7. NITRIC OXIDE [Concomitant]
     Active Substance: NITRIC OXIDE
     Indication: Tricuspid valve incompetence
     Route: 055

REACTIONS (1)
  - Drug ineffective [Unknown]
